FAERS Safety Report 21938165 (Version 1)
Quarter: 2023Q1

REPORT INFORMATION
  Report Type: Report from Study
  Country: US (occurrence: US)
  Receive Date: 20230201
  Receipt Date: 20230201
  Transmission Date: 20230418
  Serious: Yes (Other)
  Sender: FDA-Public Use
  Company Number: US-INCYTE CORPORATION-2021IN010521

PATIENT

DRUGS (2)
  1. PEMIGATINIB [Suspect]
     Active Substance: PEMIGATINIB
     Indication: Cholangiocarcinoma
     Dosage: 9 MILLIGRAM
     Route: 065
     Dates: start: 20210105
  2. PEMIGATINIB [Suspect]
     Active Substance: PEMIGATINIB
     Dosage: 13.5 MILLIGRAM
     Route: 048
     Dates: start: 20210104, end: 20211122

REACTIONS (2)
  - Cholangiocarcinoma [Unknown]
  - Disease progression [Unknown]
